FAERS Safety Report 5336773-3 (Version None)
Quarter: 2007Q2

REPORT INFORMATION
  Report Type: 
  Country: None (occurrence: None)
  Receive Date: 20070529
  Receipt Date: 20070516
  Transmission Date: 20071010
  Serious: Yes (Other)
  Sender: FDA-Public Use
  Company Number: JP-ROCHE-492655

PATIENT
  Age: 16 Year
  Sex: Male

DRUGS (5)
  1. TAMIFLU [Suspect]
     Route: 048
     Dates: start: 20070224, end: 20070224
  2. TAMIFLU [Suspect]
     Route: 048
     Dates: start: 20070225, end: 20070227
  3. TAMIFLU [Suspect]
     Route: 048
     Dates: start: 20070228
  4. KAKKON-TO [Concomitant]
     Route: 048
     Dates: start: 20070224, end: 20070225
  5. CALONAL [Concomitant]
     Dosage: TAKEN AS NEEDED.
     Route: 048

REACTIONS (2)
  - FATIGUE [None]
  - IMPULSE-CONTROL DISORDER [None]
